FAERS Safety Report 18417456 (Version 2)
Quarter: 2021Q1

REPORT INFORMATION
  Report Type: Spontaneous
  Country: US (occurrence: US)
  Receive Date: 20201022
  Receipt Date: 20210122
  Transmission Date: 20210419
  Serious: No
  Sender: FDA-Public Use
  Company Number: 2020SGN02668

PATIENT
  Sex: Female

DRUGS (4)
  1. CAPECITABINE. [Suspect]
     Active Substance: CAPECITABINE
     Indication: BRAIN NEOPLASM MALIGNANT
  2. TUKYSA [Suspect]
     Active Substance: TUCATINIB
     Indication: BRAIN NEOPLASM MALIGNANT
     Dosage: UNK, BID
  3. TUKYSA [Suspect]
     Active Substance: TUCATINIB
     Dosage: 4 DF, BID
  4. TUKYSA [Suspect]
     Active Substance: TUCATINIB
     Dosage: 250 MG

REACTIONS (11)
  - Paraesthesia [Unknown]
  - Malaise [Unknown]
  - Decreased appetite [Unknown]
  - Diarrhoea [Unknown]
  - Nausea [Unknown]
  - Adrenal insufficiency [Unknown]
  - Weight decreased [Unknown]
  - Hypersomnia [Unknown]
  - Constipation [Unknown]
  - Fatigue [Unknown]
  - Off label use [Unknown]
